FAERS Safety Report 12517905 (Version 2)
Quarter: 2016Q3

REPORT INFORMATION
  Report Type: Spontaneous
  Country: US (occurrence: US)
  Receive Date: 20160630
  Receipt Date: 20160721
  Transmission Date: 20161109
  Serious: Yes (Hospitalization, Other)
  Sender: FDA-Public Use
  Company Number: US-PFIZER INC-2016309505

PATIENT
  Age: 73 Year
  Sex: Female

DRUGS (7)
  1. AMLODIPINE [Concomitant]
     Active Substance: AMLODIPINE BESYLATE
     Dosage: UNK
  2. ALPRAZOLAM. [Concomitant]
     Active Substance: ALPRAZOLAM
     Dosage: UNK
  3. DAUNORUBICIN HCL [Suspect]
     Active Substance: DAUNORUBICIN HYDROCHLORIDE
     Indication: ACUTE MYELOID LEUKAEMIA
     Dosage: 116 MG, (Q24 DAYS 1-3)
  4. PLAVIX [Concomitant]
     Active Substance: CLOPIDOGREL BISULFATE
     Dosage: UNK
  5. ASA [Concomitant]
     Active Substance: ASPIRIN
     Dosage: UNK
  6. PREDNISONE. [Concomitant]
     Active Substance: PREDNISONE
     Dosage: 2.5 MG, UNK
  7. CYTARABINE. [Suspect]
     Active Substance: CYTARABINE
     Indication: ACUTE MYELOID LEUKAEMIA
     Dosage: 190 MG, 1X/DAY (Q24 X7)

REACTIONS (14)
  - Hiatus hernia [Unknown]
  - Dyspnoea exertional [Unknown]
  - Cough [Unknown]
  - Abdominal pain [Unknown]
  - Fatigue [Unknown]
  - Disease progression [Unknown]
  - Febrile neutropenia [Unknown]
  - Dizziness [Unknown]
  - Pancytopenia [Unknown]
  - Asthenia [Unknown]
  - Atrial fibrillation [Unknown]
  - Cardiac failure congestive [Unknown]
  - Headache [Unknown]
  - Acute myeloid leukaemia [Unknown]
